FAERS Safety Report 9471392 (Version 2)
Quarter: 2013Q4

REPORT INFORMATION
  Report Type: Spontaneous
  Country: US (occurrence: None)
  Receive Date: 20130819
  Receipt Date: 20131021
  Transmission Date: 20140711
  Serious: Yes (Death)
  Sender: FDA-Public Use
  Company Number: ENT 2013-0135

PATIENT
  Sex: Female

DRUGS (1)
  1. COMTAN (COMTESS) (ENTACAPONE) [Suspect]

REACTIONS (1)
  - Death [None]
